FAERS Safety Report 26074516 (Version 1)
Quarter: 2025Q4

REPORT INFORMATION
  Report Type: Spontaneous
  Country: US (occurrence: US)
  Receive Date: 20251121
  Receipt Date: 20251121
  Transmission Date: 20260118
  Serious: No
  Sender: TRAVERE THERAPEUTICS
  Company Number: US-TRAVERE-2025TVT02095

PATIENT
  Sex: Male

DRUGS (4)
  1. FILSPARI [Suspect]
     Active Substance: SPARSENTAN
     Indication: IgA nephropathy
     Route: 048
  2. MIDODRINE [Suspect]
     Active Substance: MIDODRINE
     Indication: Hypotension
  3. ADDERALL [Concomitant]
     Active Substance: AMPHETAMINE ASPARTATE\AMPHETAMINE SULFATE\DEXTROAMPHETAMINE SACCHARATE\DEXTROAMPHETAMINE SULFATE
  4. CARVEDILOL [Concomitant]
     Active Substance: CARVEDILOL

REACTIONS (5)
  - Proteinuria [Unknown]
  - Pain [Unknown]
  - Micturition urgency [Unknown]
  - Blood pressure increased [Unknown]
  - Heart rate increased [Unknown]
